FAERS Safety Report 6464139-1 (Version None)
Quarter: 2009Q4

REPORT INFORMATION
  Report Type: 
  Country: None (occurrence: None)
  Receive Date: 20091201
  Receipt Date: 20091120
  Transmission Date: 20100525
  Serious: No
  Sender: FDA-Public Use
  Company Number: US-ELI_LILLY_AND_COMPANY-US200909006764

PATIENT
  Sex: Male
  Weight: 101.59 kg

DRUGS (12)
  1. BYETTA [Suspect]
     Indication: TYPE 2 DIABETES MELLITUS
     Dosage: 5 UG, 2/D
     Route: 058
     Dates: end: 20080730
  2. BYETTA [Suspect]
     Dosage: 10 UG, 2/D
     Route: 058
     Dates: start: 20080731, end: 20081210
  3. JANUMET [Concomitant]
     Dosage: UNK, 2/D
     Route: 065
  4. LOVAZA [Concomitant]
     Dosage: 4 G, UNKNOWN
     Route: 065
  5. ASPIRIN [Concomitant]
     Dosage: 325 MG, DAILY (1/D)
     Route: 065
  6. LIPITOR [Concomitant]
     Indication: BLOOD CHOLESTEROL
     Dosage: 80 MG, UNKNOWN
     Route: 065
  7. MIRAPEX [Concomitant]
     Indication: RESTLESS LEGS SYNDROME
     Dosage: 0.25 MG, DAILY (1/D)
     Route: 065
  8. METOPROLOL [Concomitant]
     Indication: BLOOD PRESSURE
     Dosage: 100 MG, DAILY (1/D)
     Route: 065
  9. OXYCONTIN [Concomitant]
     Indication: BACK PAIN
     Dosage: 230 MG, UNKNOWN
     Route: 065
  10. DIOVAN [Concomitant]
     Dosage: 320 MG, DAILY (1/D)
     Route: 065
  11. DIOVAN [Concomitant]
     Dosage: 160 MG, DAILY (1/D)
  12. HYDROCHLOROTHIAZIDE [Concomitant]
     Dosage: 25 MG, DAILY (1/D)
     Route: 065

REACTIONS (1)
  - NO ADVERSE EVENT [None]
